FAERS Safety Report 6117581-2 (Version None)
Quarter: 2009Q1

REPORT INFORMATION
  Report Type: 
  Country: None (occurrence: None)
  Receive Date: 20090314
  Receipt Date: 20090216
  Transmission Date: 20090719
  Serious: No
  Sender: FDA-Public Use
  Company Number: US-ABBOTT-09P-163-0498960-00

PATIENT
  Sex: Female
  Weight: 63.56 kg

DRUGS (15)
  1. HUMIRA [Suspect]
     Indication: CROHN'S DISEASE
     Dates: start: 20080915
  2. MERCAPTOPURINE [Concomitant]
     Indication: DRUG USE FOR UNKNOWN INDICATION
  3. WELLBUTRIN [Concomitant]
     Indication: DRUG USE FOR UNKNOWN INDICATION
  4. PROZAC [Concomitant]
     Indication: DRUG USE FOR UNKNOWN INDICATION
  5. PROTONIX [Concomitant]
     Indication: DRUG USE FOR UNKNOWN INDICATION
  6. PROCTOFOAM [Concomitant]
     Indication: DRUG USE FOR UNKNOWN INDICATION
  7. COLIZOL [Concomitant]
     Indication: DRUG USE FOR UNKNOWN INDICATION
  8. KANASA [Concomitant]
     Indication: DRUG USE FOR UNKNOWN INDICATION
  9. TOPICAL CREAM [Concomitant]
     Indication: DRUG USE FOR UNKNOWN INDICATION
     Route: 061
  10. VAGISAM [Concomitant]
     Indication: HORMONE REPLACEMENT THERAPY
  11. ROWASA ENEMAS [Concomitant]
     Indication: CROHN'S DISEASE
     Route: 054
  12. FLONASE [Concomitant]
     Indication: HYPERSENSITIVITY
     Route: 045
  13. NYSTATIN [Concomitant]
     Indication: CANDIDIASIS
     Route: 048
  14. TACLONEX [Concomitant]
     Indication: PSORIASIS
     Route: 048
  15. CLOBETASOL PROPIONATE [Concomitant]
     Indication: LICHEN SCLEROSUS
     Route: 061

REACTIONS (4)
  - ARTHRALGIA [None]
  - PSORIASIS [None]
  - RASH [None]
  - WOUND [None]
